FAERS Safety Report 17052493 (Version 2)
Quarter: 2019Q4

REPORT INFORMATION
  Report Type: Spontaneous
  Country: BA (occurrence: BA)
  Receive Date: 20191120
  Receipt Date: 20191125
  Transmission Date: 20200122
  Serious: Yes (Hospitalization, Other)
  Sender: FDA-Public Use
  Company Number: BA-PFIZER INC-2019500253

PATIENT
  Age: 49 Year
  Sex: Male

DRUGS (5)
  1. ATORVASTATIN CALCIUM. [Suspect]
     Active Substance: ATORVASTATIN CALCIUM
     Dosage: 20 MG, 1X/DAY
  2. ASPIRIN [ACETYLSALICYLIC ACID] [Suspect]
     Active Substance: ASPIRIN
     Dosage: 100 MG, 1X/DAY
  3. AMLODIPINE BESILATE [Suspect]
     Active Substance: AMLODIPINE BESYLATE
     Dosage: 10 MG, 1X/DAY
  4. SOBYCOR [Suspect]
     Active Substance: BISOPROLOL FUMARATE
     Dosage: 5 MG, 1X/DAY
  5. SIOFOR [Suspect]
     Active Substance: METFORMIN HYDROCHLORIDE
     Dosage: 2 DF, 1X/DAY

REACTIONS (11)
  - Ejection fraction decreased [Unknown]
  - Blood pressure increased [Unknown]
  - Arrhythmia [Unknown]
  - Breath sounds abnormal [Unknown]
  - Left ventricular dilatation [Unknown]
  - Cough [Unknown]
  - Fatigue [Unknown]
  - Cardiac murmur [Unknown]
  - Left ventricular hypertrophy [Unknown]
  - Brain natriuretic peptide increased [Unknown]
  - Suffocation feeling [Unknown]
